FAERS Safety Report 6245703-1 (Version None)
Quarter: 2009Q2

REPORT INFORMATION
  Report Type: 
  Country: None (occurrence: None)
  Receive Date: 20090625
  Receipt Date: 20090616
  Transmission Date: 20091009
  Serious: Yes (Death, Life-Threatening, Hospitalization)
  Sender: FDA-Public Use
  Company Number: IL-BAXTER-2009BH003174

PATIENT
  Age: 73 Year
  Sex: Female

DRUGS (11)
  1. ENDOXAN BAXTER [Suspect]
     Indication: BREAST CANCER METASTATIC
     Route: 065
  2. CETUXIMAB [Suspect]
     Indication: BREAST CANCER METASTATIC
     Route: 042
     Dates: start: 20080624, end: 20081005
  3. CISPLATIN [Suspect]
     Indication: BREAST CANCER METASTATIC
     Route: 042
     Dates: start: 20080624, end: 20080922
  4. ADRIAMYCIN RDF [Suspect]
     Indication: BREAST CANCER METASTATIC
     Route: 065
  5. PACLITAXEL [Suspect]
     Indication: BREAST CANCER METASTATIC
     Route: 065
  6. COUMADIN [Concomitant]
     Indication: DRUG USE FOR UNKNOWN INDICATION
     Route: 065
  7. ASPIRIN [Concomitant]
     Indication: DRUG USE FOR UNKNOWN INDICATION
     Route: 065
  8. NORMITEN [Concomitant]
     Indication: HYPERTENSION
     Route: 065
  9. ENALAPRIL MALEATE [Concomitant]
     Indication: HYPERTENSION
     Route: 065
  10. AMLODIPINE [Concomitant]
     Indication: HYPERTENSION
     Route: 065
  11. DISOTHIAZIDE [Concomitant]
     Indication: DRUG USE FOR UNKNOWN INDICATION
     Route: 065

REACTIONS (1)
  - DYSPNOEA [None]
